FAERS Safety Report 5491459-X (Version None)
Quarter: 2007Q4

REPORT INFORMATION
  Report Type: 
  Country: None (occurrence: None)
  Receive Date: 20071018
  Receipt Date: 20071005
  Transmission Date: 20080405
  Serious: Yes (Hospitalization)
  Sender: FDA-Public Use
  Company Number: 2007S1009901

PATIENT
  Age: 73 Year
  Sex: Female

DRUGS (6)
  1. DILTIAZEM HYDROCHLORIDE [Suspect]
     Dosage: 120 MG; DAILY;
  2. ATENOLOL [Suspect]
     Dosage: 50 MG, DAILY; 25 MG, DAILY;
  3. CANDESARTAN CILEXETIL [Suspect]
     Dosage: 32 MG; DAILY,
  4. FUROSEMIDE [Suspect]
  5. METOLAZONE [Suspect]
  6. ISOSORBIDE MONONITRATE [Suspect]

REACTIONS (17)
  - ASTHENIA [None]
  - BLOOD CREATINE PHOSPHOKINASE INCREASED [None]
  - BLOOD CREATINE PHOSPHOKINASE MB INCREASED [None]
  - BLOOD CREATININE INCREASED [None]
  - BLOOD PRESSURE DECREASED [None]
  - BLOOD UREA INCREASED [None]
  - CARDIAC MURMUR [None]
  - DIZZINESS [None]
  - DYSPNOEA [None]
  - HAEMATOCRIT DECREASED [None]
  - HAEMOGLOBIN DECREASED [None]
  - LETHARGY [None]
  - NAUSEA [None]
  - NODAL RHYTHM [None]
  - SINUS ARREST [None]
  - TROPONIN INCREASED [None]
  - VOMITING [None]
